FAERS Safety Report 25540425 (Version 2)
Quarter: 2025Q3

REPORT INFORMATION
  Report Type: Spontaneous
  Country: US (occurrence: US)
  Receive Date: 20250710
  Receipt Date: 20250804
  Transmission Date: 20251021
  Serious: Yes (Other)
  Sender: NOVARTIS
  Company Number: US-002147023-NVSC2025US107062

PATIENT
  Age: 66 Year
  Sex: Male
  Weight: 128 kg

DRUGS (2)
  1. PLUVICTO [Suspect]
     Active Substance: LUTETIUM LU-177 VIPIVOTIDE TETRAXETAN
     Indication: Hormone-refractory prostate cancer
     Route: 042
     Dates: start: 20241216, end: 20250610
  2. ZOFRAN [Concomitant]
     Active Substance: ONDANSETRON HYDROCHLORIDE
     Indication: Antiemetic supportive care
     Route: 048
     Dates: start: 20250610, end: 20250610

REACTIONS (6)
  - Unresponsive to stimuli [Unknown]
  - Fatigue [Recovered/Resolved with Sequelae]
  - Brain fog [Recovered/Resolved with Sequelae]
  - Confusional state [Recovered/Resolved]
  - Condition aggravated [Unknown]
  - Incontinence [Recovered/Resolved]

NARRATIVE: CASE EVENT DATE: 20250610
